FAERS Safety Report 9579865 (Version 1)
Quarter: 2013Q4

REPORT INFORMATION
  Report Type: Spontaneous
  Country: GB (occurrence: GB)
  Receive Date: 20131002
  Receipt Date: 20131002
  Transmission Date: 20140711
  Serious: Yes (Other)
  Sender: FDA-Public Use
  Company Number: GB-MERCK-1309GBR011549

PATIENT
  Age: 48 Year
  Sex: Female

DRUGS (3)
  1. RIBAVIRIN [Suspect]
     Indication: HEPATITIS C
     Dosage: UNK
     Route: 048
     Dates: start: 20121016
  2. PEGINTERFERON ALFA-2B [Suspect]
     Dosage: UNK, QW
     Route: 058
     Dates: start: 20121016
  3. TELAPREVIR [Suspect]
     Indication: HEPATITIS C
     Dosage: 750 MG, TID
     Route: 048
     Dates: start: 20121016

REACTIONS (8)
  - Anaemia [Recovered/Resolved]
  - Proctalgia [Not Recovered/Not Resolved]
  - Anal haemorrhage [Not Recovered/Not Resolved]
  - Rash [Recovering/Resolving]
  - Oedema peripheral [Not Recovered/Not Resolved]
  - Hypoaesthesia oral [Not Recovered/Not Resolved]
  - Dyspnoea [Not Recovered/Not Resolved]
  - Anal pruritus [Not Recovered/Not Resolved]
